FAERS Safety Report 6413297-3 (Version None)
Quarter: 2009Q4

REPORT INFORMATION
  Report Type: 
  Country: None (occurrence: None)
  Receive Date: 20091026
  Receipt Date: 20091013
  Transmission Date: 20100525
  Serious: Yes (Hospitalization)
  Sender: FDA-Public Use
  Company Number: BE-ROCHE-660540

PATIENT
  Sex: Male
  Weight: 79 kg

DRUGS (4)
  1. CAPECITABINE [Suspect]
     Indication: COLON CANCER STAGE III
     Route: 048
     Dates: start: 20080828, end: 20080926
  2. CAPECITABINE [Suspect]
     Route: 048
     Dates: start: 20081010, end: 20090101
  3. CAPECITABINE [Suspect]
     Route: 048
     Dates: start: 20090122, end: 20090305
  4. OXALIPLATIN [Concomitant]
     Indication: COLON CANCER STAGE III
     Route: 042
     Dates: end: 20090305

REACTIONS (4)
  - DIARRHOEA [None]
  - GASTROINTESTINAL FISTULA [None]
  - MYALGIA [None]
  - PARAESTHESIA [None]
